FAERS Safety Report 7866006-5 (Version None)
Quarter: 2011Q4

REPORT INFORMATION
  Report Type: 
  Country: None (occurrence: None)
  Receive Date: 20111028
  Receipt Date: 20110406
  Transmission Date: 20120403
  Serious: No
  Sender: FDA-Public Use
  Company Number: US-GLAXOSMITHKLINE-A0921675A

PATIENT
  Age: 89 Year
  Sex: Female
  Weight: 82.3 kg

DRUGS (9)
  1. ALBUTEROL [Concomitant]
  2. ADVAIR DISKUS 100/50 [Suspect]
     Indication: CHRONIC OBSTRUCTIVE PULMONARY DISEASE
     Dosage: 1PUFF TWICE PER DAY
     Route: 055
     Dates: start: 20101203, end: 20110505
  3. METOPROLOL TARTRATE [Concomitant]
  4. ADVAIR DISKUS 100/50 [Suspect]
     Route: 065
     Dates: start: 20090407, end: 20101203
  5. SIMVASTATIN [Concomitant]
  6. HYDROCHLOROTHIAZIDE [Concomitant]
  7. ROCALTROL [Concomitant]
  8. PIROXICAM [Concomitant]
  9. ENALAPRIL MALEATE [Concomitant]

REACTIONS (5)
  - CHRONIC OBSTRUCTIVE PULMONARY DISEASE [None]
  - INHALATION THERAPY [None]
  - DYSPNOEA [None]
  - DIZZINESS [None]
  - PRODUCT QUALITY ISSUE [None]
